FAERS Safety Report 12407270 (Version 1)
Quarter: 2016Q2

REPORT INFORMATION
  Report Type: Spontaneous
  Country: US (occurrence: US)
  Receive Date: 20160526
  Receipt Date: 20160526
  Transmission Date: 20160815
  Serious: Yes (Other)
  Sender: FDA-Public Use
  Company Number: US-BAYER-2016-101121

PATIENT
  Age: 41 Year
  Sex: Male
  Weight: 131.5 kg

DRUGS (1)
  1. A AND D ORIGINAL [Suspect]
     Active Substance: LANOLIN\PETROLATUM
     Indication: SKIN ABRASION
     Dosage: 1 DF, PRN
     Route: 061

REACTIONS (2)
  - Drug dependence [None]
  - Expired product administered [None]

NARRATIVE: CASE EVENT DATE: 20131201
